FAERS Safety Report 8169248-7 (Version None)
Quarter: 2012Q1

REPORT INFORMATION
  Report Type: 
  Country: None (occurrence: None)
  Receive Date: 20120228
  Receipt Date: 20120221
  Transmission Date: 20120608
  Serious: Yes (Other)
  Sender: FDA-Public Use
  Company Number: JP-ASTRAZENECA-2012SE08764

PATIENT
  Age: 23918 Day
  Sex: Female
  Weight: 60 kg

DRUGS (3)
  1. CANDESARTAN CILEXETIL [Suspect]
     Indication: HYPERTENSION
     Route: 048
     Dates: start: 20120118, end: 20120121
  2. DIOVENOR [Concomitant]
     Indication: VENOUS INSUFFICIENCY
     Route: 048
     Dates: start: 20010102
  3. XANAX [Concomitant]
     Indication: ANXIETY
     Route: 048
     Dates: start: 20010102

REACTIONS (1)
  - GENERALISED OEDEMA [None]
